FAERS Safety Report 4625791-6 (Version None)
Quarter: 2005Q1

REPORT INFORMATION
  Report Type: 
  Country: None (occurrence: None)
  Receive Date: 20050330
  Receipt Date: 20050318
  Transmission Date: 20050727
  Serious: Yes (Hospitalization)
  Sender: FDA-Public Use
  Company Number: 212833

PATIENT
  Age: 25 Year
  Sex: Female

DRUGS (2)
  1. EFALIZUMAB                 (EFALIZUMAB) [Suspect]
     Indication: PSORIASIS
     Dosage: 1 MG/KG, 1/WEEK, SUBCUTANEOUS
     Route: 058
     Dates: start: 20041221, end: 20050118
  2. RINDERON (BETAMETHASONE ACETATE,  BETAMETHASONE SODIUM  PHOSPHATE) [Concomitant]

REACTIONS (11)
  - BLOOD CULTURE POSITIVE [None]
  - CHEST X-RAY ABNORMAL [None]
  - CULTURE TISSUE SPECIMEN POSITIVE [None]
  - HAEMATOCRIT DECREASED [None]
  - HAEMOGLOBIN DECREASED [None]
  - LEUKOCYTOSIS [None]
  - PYREXIA [None]
  - SKIN LESION [None]
  - SKIN ULCER [None]
  - STAPHYLOCOCCAL INFECTION [None]
  - TENDERNESS [None]
